FAERS Safety Report 24824737 (Version 1)
Quarter: 2025Q1

REPORT INFORMATION
  Report Type: Spontaneous
  Country: CA (occurrence: CA)
  Receive Date: 20250109
  Receipt Date: 20250109
  Transmission Date: 20250409
  Serious: Yes (Hospitalization)
  Sender: AMGEN
  Company Number: CA-AMGEN-CANSP2025002322

PATIENT
  Age: 76 Year
  Sex: Female

DRUGS (1)
  1. ADALIMUMAB [Suspect]
     Active Substance: ADALIMUMAB
     Indication: Psoriasis
     Dosage: UNK 2 TIMES/WK (STRENGTH: 40 MG/ 0.8 ML) (THERAPY DURATION: 4 DAYS)
     Route: 058

REACTIONS (2)
  - Heart rate irregular [Unknown]
  - Fatigue [Unknown]
